FAERS Safety Report 7425271-9 (Version None)
Quarter: 2011Q2

REPORT INFORMATION
  Report Type: 
  Country: None (occurrence: None)
  Receive Date: 20110420
  Receipt Date: 20110119
  Transmission Date: 20111010
  Serious: Yes (Other)
  Sender: FDA-Public Use
  Company Number: US-BAYER-201040746NA

PATIENT
  Age: 17 Year
  Sex: Female
  Weight: 56.689 kg

DRUGS (11)
  1. PROMETHAZINE [Concomitant]
     Dosage: UNK
     Dates: start: 20090922, end: 20090927
  2. YAZ [Suspect]
     Indication: CONTRACEPTION
     Dosage: 0.02 MG, QD
     Route: 048
     Dates: start: 20090411, end: 20091103
  3. YAZ [Suspect]
     Indication: MENSTRUATION IRREGULAR
  4. LEXAPRO [Concomitant]
     Dosage: 10 MG, QD
     Dates: start: 20090910, end: 20090922
  5. CLOTRIMAZOLE [Concomitant]
     Dosage: UNK
     Dates: start: 20090922, end: 20090927
  6. CYMBALTA [Concomitant]
     Dosage: 30 MG, QD
     Dates: start: 20090922
  7. YAZ [Suspect]
     Indication: ACNE
  8. GARDASIL (QUADVALENT HUMAN PAPILLOMVIRUSE) [Concomitant]
     Indication: VAGINITIS BACTERIAL
     Dosage: UNK
     Dates: start: 20090213
  9. LOTRISONE [Concomitant]
     Indication: TINEA INFECTION
     Dosage: UNK UNK, BID
     Dates: start: 20090910
  10. NSAID'S [Concomitant]
     Dosage: UNK
     Dates: start: 20050101
  11. METROGEL [Concomitant]
     Indication: VAGINITIS BACTERIAL
     Dosage: UNK
     Dates: start: 20090213

REACTIONS (3)
  - CHOLECYSTITIS CHRONIC [None]
  - BILIARY DYSKINESIA [None]
  - GALLBLADDER INJURY [None]
